FAERS Safety Report 11853937 (Version 2)
Quarter: 2016Q1

REPORT INFORMATION
  Report Type: Report from Study
  Country: US (occurrence: US)
  Receive Date: 20151219
  Receipt Date: 20160218
  Transmission Date: 20160526
  Serious: Yes (Hospitalization, Other)
  Sender: FDA-Public Use
  Company Number: US-BRISTOL-MYERS SQUIBB COMPANY-BMS-2015-053464

PATIENT
  Age: 65 Year
  Sex: Male
  Weight: 92.2 kg

DRUGS (8)
  1. NIVOLUMAB [Suspect]
     Active Substance: NIVOLUMAB
     Indication: METASTATIC MALIGNANT MELANOMA
     Dosage: 3 MG/KG, 277MG
     Route: 065
     Dates: start: 20150226, end: 20150226
  2. NIVOLUMAB [Suspect]
     Active Substance: NIVOLUMAB
     Dosage: 1 UNK, 93MG
     Route: 065
     Dates: start: 20150319, end: 20150319
  3. NIVOLUMAB [Suspect]
     Active Substance: NIVOLUMAB
     Dosage: 1 MG/KG, 93KG
     Route: 065
     Dates: start: 20150428, end: 20150428
  4. IPILIMUMAB [Suspect]
     Active Substance: IPILIMUMAB
     Dosage: 3 MG/KG, 277MG
     Route: 065
     Dates: start: 20150319, end: 20150319
  5. IPILIMUMAB [Suspect]
     Active Substance: IPILIMUMAB
     Dosage: 3 UNK, 277MG
     Route: 065
     Dates: start: 20150428, end: 20150428
  6. IPILIMUMAB [Suspect]
     Active Substance: IPILIMUMAB
     Indication: METASTATIC MALIGNANT MELANOMA
     Dosage: 3 MG/KG, UNK
     Route: 065
     Dates: start: 20150226, end: 20150226
  7. NIVOLUMAB [Suspect]
     Active Substance: NIVOLUMAB
     Dosage: 1 MG/KG, 93KG
     Route: 065
     Dates: start: 20150409, end: 20150409
  8. IPILIMUMAB [Suspect]
     Active Substance: IPILIMUMAB
     Dosage: 3 UNK, 277MG
     Route: 065
     Dates: start: 20150409, end: 20150409

REACTIONS (3)
  - Diarrhoea [Recovered/Resolved]
  - Fatigue [Recovered/Resolved]
  - Dehydration [Recovered/Resolved]

NARRATIVE: CASE EVENT DATE: 20150801
